FAERS Safety Report 12207058 (Version 1)
Quarter: 2016Q1

REPORT INFORMATION
  Report Type: Spontaneous
  Country: US (occurrence: None)
  Receive Date: 20160323
  Receipt Date: 20160323
  Transmission Date: 20160526
  Serious: Yes (Hospitalization)
  Sender: FDA-Public Use
  Company Number: None

PATIENT
  Age: 71 Year
  Sex: Female

DRUGS (7)
  1. HAIR SKIN + NAILS [Concomitant]
  2. LETROZOLE. [Suspect]
     Active Substance: LETROZOLE
     Indication: PROPHYLAXIS
     Dosage: 1 PILL PER DAY 1 PILL PER DAY MOUTH
     Route: 048
     Dates: start: 20141120
  3. MULTI VITAMIN [Concomitant]
     Active Substance: VITAMINS
  4. EYE CAPS [Concomitant]
  5. LETROZOLE. [Suspect]
     Active Substance: LETROZOLE
     Indication: BREAST CANCER
     Dosage: 1 PILL PER DAY 1 PILL PER DAY MOUTH
     Route: 048
     Dates: start: 20141120
  6. PRAVASTATIN [Concomitant]
     Active Substance: PRAVASTATIN\PRAVASTATIN SODIUM
  7. FISH OIL [Concomitant]
     Active Substance: FISH OIL

REACTIONS (4)
  - Blindness unilateral [None]
  - Pain in extremity [None]
  - Blood cholesterol abnormal [None]
  - Dizziness [None]

NARRATIVE: CASE EVENT DATE: 20151008
